FAERS Safety Report 5488467-1 (Version None)
Quarter: 2007Q4

REPORT INFORMATION
  Report Type: 
  Country: None (occurrence: None)
  Receive Date: 20071005
  Receipt Date: 20070618
  Transmission Date: 20080405
  Serious: No
  Sender: FDA-Public Use
  Company Number: PHEH2007US08929

PATIENT
  Age: 64 Year
  Sex: Female

DRUGS (2)
  1. TEKTURNA [Suspect]
     Indication: HYPERTENSION
     Dosage: 150 MG,QD,ORAL; 300 MG,QD,ORAL
     Route: 048
     Dates: start: 20070609, end: 20070612
  2. TEKTURNA [Suspect]
     Indication: HYPERTENSION
     Dosage: 150 MG,QD,ORAL; 300 MG,QD,ORAL
     Route: 048
     Dates: start: 20070613

REACTIONS (1)
  - BLOOD PRESSURE INADEQUATELY CONTROLLED [None]
